FAERS Safety Report 8174737-5 (Version None)
Quarter: 2012Q1

REPORT INFORMATION
  Report Type: 
  Country: None (occurrence: None)
  Receive Date: 20120229
  Receipt Date: 20120223
  Transmission Date: 20120608
  Serious: Yes (Hospitalization)
  Sender: FDA-Public Use
  Company Number: GB-GLAXOSMITHKLINE-B0783483A

PATIENT
  Age: 61 Year
  Sex: Female
  Weight: 47.5 kg

DRUGS (10)
  1. PAROXETINE [Suspect]
     Indication: DEPRESSION
     Route: 048
     Dates: start: 20120121, end: 20120121
  2. MEBEVERINE HYDROCHLORIDE [Concomitant]
  3. PEPTAC [Concomitant]
  4. TILDIEM RETARD [Concomitant]
  5. GABAPENTIN [Concomitant]
  6. OMEPRAZOLE [Concomitant]
  7. ALBUTEROL [Concomitant]
  8. BECLOMETHASONE DIPROPIONATE [Concomitant]
  9. ISOSORBIDE MONONITRATE [Concomitant]
  10. NITROGLYCERIN [Concomitant]

REACTIONS (5)
  - BURNING SENSATION [None]
  - THROMBOCYTOPENIA [None]
  - CONTUSION [None]
  - CHEST PAIN [None]
  - HYPONATRAEMIA [None]
